FAERS Safety Report 5677153-0 (Version None)
Quarter: 2008Q1

REPORT INFORMATION
  Report Type: 
  Country: None (occurrence: None)
  Receive Date: 20080324
  Receipt Date: 20080314
  Transmission Date: 20080703
  Serious: Yes (Hospitalization)
  Sender: FDA-Public Use
  Company Number: A0714382A

PATIENT
  Age: 58 Year
  Sex: Female
  Weight: 68.9 kg

DRUGS (4)
  1. LAPATINIB [Suspect]
     Dosage: 1250MG PER DAY
     Route: 048
     Dates: start: 20070921
  2. CAPECITABINE [Suspect]
     Dosage: 1300MG TWICE PER DAY
     Route: 048
     Dates: start: 20070801
  3. HYDROCHLOROTHIAZIDE [Concomitant]
     Indication: HYPERTENSION
     Dosage: 25MG PER DAY
     Route: 048
     Dates: end: 20071012
  4. IRBESARTAN [Concomitant]
     Indication: HYPERTENSION
     Dosage: 150MG PER DAY
     Route: 048

REACTIONS (10)
  - COUGH [None]
  - DEHYDRATION [None]
  - DIARRHOEA [None]
  - DYSPNOEA [None]
  - HYPERCAPNIA [None]
  - HYPOCAPNIA [None]
  - HYPOXIA [None]
  - PLEURAL EFFUSION [None]
  - SYNCOPE [None]
  - VOMITING [None]
